FAERS Safety Report 7236062-6 (Version None)
Quarter: 2011Q1

REPORT INFORMATION
  Report Type: 
  Country: None (occurrence: None)
  Receive Date: 20110120
  Receipt Date: 20110113
  Transmission Date: 20110831
  Serious: Yes (Other)
  Sender: FDA-Public Use
  Company Number: CA-AMGEN-CANSP2010005871

PATIENT

DRUGS (3)
  1. ENBREL [Suspect]
     Indication: ANKYLOSING SPONDYLITIS
     Dosage: 50 MG, QWK
     Route: 058
     Dates: start: 20100323, end: 20101122
  2. PREDNISONE [Concomitant]
  3. LOSEC                              /00661201/ [Concomitant]
     Dosage: UNK

REACTIONS (4)
  - SARCOIDOSIS [None]
  - HILAR LYMPHADENOPATHY [None]
  - DYSPNOEA [None]
  - LYMPHADENOPATHY MEDIASTINAL [None]
